FAERS Safety Report 22027534 (Version 1)
Quarter: 2023Q1

REPORT INFORMATION
  Report Type: Spontaneous
  Country: US (occurrence: None)
  Receive Date: 20230217
  Receipt Date: 20230217
  Transmission Date: 20230417
  Serious: Yes (Other)
  Sender: FDA-Public Use
  Company Number: None

PATIENT
  Age: 29 Year
  Sex: Female
  Weight: 52 kg

DRUGS (1)
  1. MISOPROSTOL [Suspect]
     Active Substance: MISOPROSTOL
     Dosage: OTHER QUANTITY : 6 TABLET(S);?FREQUENCY : AS NEEDED;?
     Route: 067
     Dates: start: 20230217, end: 20230217

REACTIONS (1)
  - Product shape issue [None]

NARRATIVE: CASE EVENT DATE: 20230217
